FAERS Safety Report 17450480 (Version 1)
Quarter: 2020Q1

REPORT INFORMATION
  Report Type: Spontaneous
  Country: US (occurrence: US)
  Receive Date: 20200221
  Receipt Date: 20200221
  Transmission Date: 20200409
  Serious: Yes (Hospitalization)
  Sender: FDA-Public Use
  Company Number: None

PATIENT
  Age: 3 Year
  Sex: Male

DRUGS (8)
  1. VALPROIC ACID 250MG/5ML [Concomitant]
     Active Substance: VALPROIC ACID
  2. KEPPRA [Concomitant]
     Active Substance: LEVETIRACETAM
  3. POLY-VI-SOL [Concomitant]
     Active Substance: VITAMINS
  4. EPIDIOLEX [Suspect]
     Active Substance: CANNABIDIOL
     Indication: IDIOPATHIC GENERALISED EPILEPSY
     Route: 048
     Dates: start: 20191231
  5. CLONAZEPAM 0.25MG ODT [Concomitant]
  6. ONFI 2.5MG/ML [Concomitant]
  7. VITAMIN B-12 SOLUTION [Concomitant]
  8. PROAIR HFA [Concomitant]
     Active Substance: ALBUTEROL SULFATE

REACTIONS (1)
  - Seizure [None]

NARRATIVE: CASE EVENT DATE: 20200220
